FAERS Safety Report 6442098-5 (Version None)
Quarter: 2009Q4

REPORT INFORMATION
  Report Type: 
  Country: None (occurrence: None)
  Receive Date: 20091116
  Receipt Date: 20091103
  Transmission Date: 20100525
  Serious: Yes (Other)
  Sender: FDA-Public Use
  Company Number: PHHY2009GB48264

PATIENT
  Sex: Male

DRUGS (4)
  1. SANDIMMUNE [Suspect]
     Indication: RENAL TRANSPLANT
     Dosage: UNK
  2. ATORVASTATIN [Concomitant]
     Dosage: 40 MG, DAILY
  3. AZATHIOPRINE [Concomitant]
     Dosage: UNK
  4. PREDNISOLONE [Concomitant]
     Dosage: UNK

REACTIONS (4)
  - JOINT INJURY [None]
  - MUSCLE DISORDER [None]
  - PAIN IN EXTREMITY [None]
  - TENDON INJURY [None]
